FAERS Safety Report 5787310-0 (Version None)
Quarter: 2008Q2

REPORT INFORMATION
  Report Type: 
  Country: None (occurrence: None)
  Receive Date: 20080623
  Receipt Date: 20080623
  Transmission Date: 20081010
  Serious: Yes (Other)
  Sender: FDA-Public Use
  Company Number: None

PATIENT
  Age: 19 Year
  Sex: Female
  Weight: 41.7309 kg

DRUGS (2)
  1. KENALOG [Suspect]
     Indication: SINUSITIS
     Dosage: 10 MG -1 UNIT- IM
     Route: 030
     Dates: start: 20080307, end: 20080502
  2. KENALOG [Suspect]
     Indication: SINUSITIS
     Dosage: 10 MG -2 UNITS- IM
     Route: 030
     Dates: start: 20080502, end: 20080502

REACTIONS (2)
  - INJECTION SITE INDURATION [None]
  - INJECTION SITE PAIN [None]
